FAERS Safety Report 8937477 (Version 1)
Quarter: 2012Q4

REPORT INFORMATION
  Report Type: Spontaneous
  Country: CN (occurrence: None)
  Receive Date: 20121121
  Receipt Date: 20121121
  Transmission Date: 20130627
  Serious: Yes (Hospitalization)
  Sender: FDA-Public Use
  Company Number: VAL_01000_2012

PATIENT
  Sex: Female
  Weight: 59 kg

DRUGS (6)
  1. CALCITRIOL [Suspect]
     Indication: BLOOD CALCIUM DECREASED
     Route: 048
     Dates: end: 2008
  2. MYCOPHENOLATE MOFETIL [Suspect]
     Indication: RENAL TRANSPLANT
     Route: 048
     Dates: start: 20080222
  3. MYCOPHENOLATE MOFETIL [Suspect]
     Indication: RENAL TRANSPLANT
     Route: 048
  4. OXYCODONE / ACETAMINOPHEN [Suspect]
     Indication: SCIATICA
     Route: 048
     Dates: start: 201010
  5. TACROLIMUS [Concomitant]
  6. PREDNISONE [Concomitant]

REACTIONS (3)
  - Sciatica [None]
  - Drug hypersensitivity [None]
  - Dislocation of vertebra [None]
